FAERS Safety Report 8761969 (Version 3)
Quarter: 2013Q2

REPORT INFORMATION
  Report Type: Report from Study
  Country: JP (occurrence: JP)
  Receive Date: 20120830
  Receipt Date: 20130625
  Transmission Date: 20140414
  Serious: Yes (Other)
  Sender: FDA-Public Use
  Company Number: JP-VERTEX PHARMACEUTICAL INC.-AE-2012-009787

PATIENT
  Age: 69 Year
  Sex: Male

DRUGS (8)
  1. VX-950 (TELAPREVIR) [Suspect]
     Indication: CHRONIC HEPATITIS C
     Dosage: 1500 MG, QD
     Route: 048
     Dates: start: 20120518, end: 20120527
  2. VX-950 (TELAPREVIR) [Suspect]
     Dosage: 750 MG, QD
     Route: 048
     Dates: start: 20120528, end: 20120810
  3. RIBAVIRIN [Concomitant]
     Dosage: 800 MG, QD
     Route: 048
     Dates: start: 20120518
  4. RIBAVIRIN [Concomitant]
     Dosage: 400 MG, QD
     Route: 048
  5. RIBAVIRIN [Concomitant]
     Dosage: 800 MG, QD
     Route: 048
     Dates: end: 20121102
  6. PEGINTERFERON ALFA-2B [Concomitant]
     Dosage: 100 ?G, QW
     Route: 058
     Dates: start: 20120518
  7. PEGINTERFERON ALFA-2B [Concomitant]
     Dosage: 1.2 ?G/KG, QW
     Route: 058
  8. PEGINTERFERON ALFA-2B [Concomitant]
     Dosage: 100 ?G, QW
     Route: 058
     Dates: end: 20121026

REACTIONS (1)
  - Rash [Recovered/Resolved]
